FAERS Safety Report 5137142-1 (Version None)
Quarter: 2006Q4

REPORT INFORMATION
  Report Type: 
  Country: None (occurrence: None)
  Receive Date: 20061030
  Receipt Date: 20050816
  Transmission Date: 20070319
  Serious: No
  Sender: FDA-Public Use
  Company Number: US-GLAXOSMITHKLINE-A0570446A

PATIENT
  Age: 60 Year
  Sex: Male
  Weight: 72.3 kg

DRUGS (4)
  1. ADVAIR HFA [Suspect]
     Indication: ASTHMA
     Route: 055
     Dates: start: 20050802
  2. SUDAFED 12 HOUR [Concomitant]
     Indication: ILL-DEFINED DISORDER
     Route: 048
     Dates: start: 19950101
  3. NASACORT AQ [Concomitant]
     Dosage: 2SPR TWICE PER DAY
     Route: 045
     Dates: start: 20050802
  4. SINGULAIR [Concomitant]
     Indication: ASTHMA
     Route: 048
     Dates: start: 20010101

REACTIONS (1)
  - DYSPHONIA [None]
